FAERS Safety Report 14942352 (Version 1)
Quarter: 2018Q2

REPORT INFORMATION
  Report Type: Spontaneous
  Country: US (occurrence: US)
  Receive Date: 20180528
  Receipt Date: 20180528
  Transmission Date: 20180711
  Serious: Yes (Death, Other)
  Sender: FDA-Public Use
  Company Number: US-B.I. PHARMACEUTICALS,INC./RIDGEFIELD-2018-BI-027909

PATIENT
  Sex: Male

DRUGS (1)
  1. OFEV [Suspect]
     Active Substance: NINTEDANIB
     Indication: LEUKAEMIA
     Route: 048
     Dates: start: 201801

REACTIONS (4)
  - Spinal column injury [Unknown]
  - Necrotising fasciitis [Fatal]
  - Off label use [Unknown]
  - Fall [Recovered/Resolved]
